FAERS Safety Report 6304556-3 (Version None)
Quarter: 2009Q3

REPORT INFORMATION
  Report Type: 
  Country: None (occurrence: None)
  Receive Date: 20090806
  Receipt Date: 20090721
  Transmission Date: 20100115
  Serious: Yes (Hospitalization)
  Sender: FDA-Public Use
  Company Number: DSA_33671_2009

PATIENT
  Age: 75 Year
  Sex: Male

DRUGS (10)
  1. ENALAPRIL MALEATE [Suspect]
     Indication: CARDIAC FAILURE
     Dosage: 20 MG QD, ORAL
     Route: 048
  2. LITHIOFOR (LITHIOFOR - LITHIUMS04) [Suspect]
     Indication: AFFECTIVE DISORDER
     Dosage: 660 MG, QD, ORAL
     Route: 048
     Dates: end: 20090206
  3. TOREM (TOREM - TORSEMIDE) [Suspect]
     Indication: CARDIAC FAILURE
     Dosage: 10 MG, BID, ORAL
     Route: 048
     Dates: start: 20090101, end: 20090101
  4. ASPIRIN [Concomitant]
  5. BUPROPION HCL [Concomitant]
  6. METFORMIN HCL [Concomitant]
  7. TRANSIPEG [Concomitant]
  8. PREGABALIN [Concomitant]
  9. TAMSULOSIN HYDROCHLORIDE [Concomitant]
  10. VENLAFAXINE HCL [Concomitant]

REACTIONS (13)
  - ANTIPSYCHOTIC DRUG LEVEL INCREASED [None]
  - CLONUS [None]
  - DEPRESSED LEVEL OF CONSCIOUSNESS [None]
  - DRUG INTERACTION [None]
  - GAZE PALSY [None]
  - HEART RATE INCREASED [None]
  - HYPERKALAEMIA [None]
  - HYPERNATRAEMIA [None]
  - HYPERTONIA [None]
  - HYPOTENSION [None]
  - NEPHROGENIC DIABETES INSIPIDUS [None]
  - PNEUMONIA [None]
  - RENAL FAILURE ACUTE [None]
